FAERS Safety Report 9403692 (Version 1)
Quarter: 2013Q3

REPORT INFORMATION
  Report Type: Spontaneous
  Country: US (occurrence: None)
  Receive Date: 20130715
  Receipt Date: 20130715
  Transmission Date: 20140515
  Serious: Yes (Hospitalization)
  Sender: FDA-Public Use
  Company Number: None

PATIENT
  Age: 80 Year
  Sex: Male
  Weight: 68.2 kg

DRUGS (1)
  1. PROCHLORPERAZINE [Suspect]
     Dosage: MG  PO?~03/26/2013
     Route: 048
     Dates: start: 20130326

REACTIONS (2)
  - Urinary retention [None]
  - Renal failure acute [None]
